FAERS Safety Report 11491808 (Version 3)
Quarter: 2015Q4

REPORT INFORMATION
  Report Type: Spontaneous
  Country: US (occurrence: US)
  Receive Date: 20150910
  Receipt Date: 20151119
  Transmission Date: 20160304
  Serious: Yes (Other)
  Sender: FDA-Public Use
  Company Number: US-TARO-2015TAR00833

PATIENT
  Sex: Female
  Weight: 54.42 kg

DRUGS (3)
  1. TYLENOL PM [Concomitant]
     Active Substance: ACETAMINOPHEN\DIPHENHYDRAMINE
     Dosage: UNK
  2. TOPICORT [Suspect]
     Active Substance: DESOXIMETASONE
     Indication: SEBORRHOEIC DERMATITIS
     Dosage: SMALL AMOUNT, ON AND OFF
     Route: 061
     Dates: start: 2012, end: 20150826
  3. TOPICORT [Suspect]
     Active Substance: DESOXIMETASONE
     Indication: RASH

REACTIONS (16)
  - Pruritus [Not Recovered/Not Resolved]
  - Intentional product misuse [Recovered/Resolved]
  - Burning sensation [Not Recovered/Not Resolved]
  - Dermatitis [Unknown]
  - Insomnia [Unknown]
  - Steroid withdrawal syndrome [Not Recovered/Not Resolved]
  - Activities of daily living impaired [Not Recovered/Not Resolved]
  - Atrophy [Unknown]
  - Emotional distress [Not Recovered/Not Resolved]
  - Skin exfoliation [Not Recovered/Not Resolved]
  - Erythema [Not Recovered/Not Resolved]
  - Expired product administered [Recovered/Resolved]
  - Skin fissures [Not Recovered/Not Resolved]
  - Scab [Not Recovered/Not Resolved]
  - Secretion discharge [Not Recovered/Not Resolved]
  - Pyrexia [Unknown]

NARRATIVE: CASE EVENT DATE: 2015
